FAERS Safety Report 12053082 (Version 1)
Quarter: 2016Q1

REPORT INFORMATION
  Report Type: Spontaneous
  Country: US (occurrence: US)
  Receive Date: 20160209
  Receipt Date: 20160209
  Transmission Date: 20160526
  Serious: No
  Sender: FDA-Public Use
  Company Number: US-ACTELION PHARMACEUTICALS US, INC.-A-US2016-131037

PATIENT
  Age: 58 Year
  Sex: Female

DRUGS (11)
  1. TRACLEER [Suspect]
     Active Substance: BOSENTAN
     Indication: PULMONARY ARTERIAL HYPERTENSION
     Dosage: 125 MG, UNK
     Route: 048
  2. COUMADIN [Concomitant]
     Active Substance: WARFARIN SODIUM
     Dosage: 5 MG, UNK
  3. PREDNISONE. [Concomitant]
     Active Substance: PREDNISONE
     Dosage: 10 MG, UNK
  4. FOLIC ACID. [Concomitant]
     Active Substance: FOLIC ACID
     Dosage: 1 MG, UNK
  5. FLECAINIDE [Concomitant]
     Active Substance: FLECAINIDE
     Dosage: 50 MG, UNK
  6. ADCIRCA [Concomitant]
     Active Substance: TADALAFIL
     Dosage: 20 MG, UNK
  7. FUROSEMIDE. [Concomitant]
     Active Substance: FUROSEMIDE
     Dosage: 20 MG, UNK
  8. PANTOPRAZOLE [Concomitant]
     Active Substance: PANTOPRAZOLE SODIUM
     Dosage: 40 MG, UNK
  9. BACLOFEN. [Concomitant]
     Active Substance: BACLOFEN
     Dosage: 10 MG, UNK
  10. VALCHLOR [Suspect]
     Active Substance: MECHLORETHAMINE
     Indication: MYCOSIS FUNGOIDES
     Dosage: UNK
     Route: 061
     Dates: start: 201506
  11. METOPROLOL. [Concomitant]
     Active Substance: METOPROLOL
     Dosage: 25 MG, UNK

REACTIONS (1)
  - Rash [Not Recovered/Not Resolved]
